FAERS Safety Report 5235170-9 (Version None)
Quarter: 2007Q1

REPORT INFORMATION
  Report Type: 
  Country: None (occurrence: None)
  Receive Date: 20070207
  Receipt Date: 20070126
  Transmission Date: 20070707
  Serious: Yes (Death)
  Sender: FDA-Public Use
  Company Number: A-CH2007-14090

PATIENT
  Age: 52 Year
  Sex: Male

DRUGS (3)
  1. TRACLEER [Suspect]
     Indication: PULMONARY HYPERTENSION
     Dosage: 62.5 MG, BID, ORAL
     Route: 048
     Dates: start: 20061129, end: 20061227
  2. PREDNOL (METHYLPREDNISOLONE) [Concomitant]
  3. FORADIL [Concomitant]

REACTIONS (5)
  - AGITATION [None]
  - CARDIO-RESPIRATORY ARREST [None]
  - CONDITION AGGRAVATED [None]
  - DYSPNOEA [None]
  - TREATMENT NONCOMPLIANCE [None]
